FAERS Safety Report 24187727 (Version 1)
Quarter: 2024Q3

REPORT INFORMATION
  Report Type: Spontaneous
  Country: CN (occurrence: CN)
  Receive Date: 20240808
  Receipt Date: 20240808
  Transmission Date: 20241017
  Serious: Yes (Other)
  Sender: ROCHE
  Company Number: CN-ROCHE-10000043028

PATIENT
  Age: 63 Year
  Sex: Male
  Weight: 67 kg

DRUGS (1)
  1. TOCILIZUMAB [Suspect]
     Active Substance: TOCILIZUMAB
     Indication: Rheumatoid arthritis
     Route: 042
     Dates: start: 20240717

REACTIONS (7)
  - Pruritus [Recovering/Resolving]
  - Erythema [Recovering/Resolving]
  - Skin oedema [Recovering/Resolving]
  - Lip swelling [Recovering/Resolving]
  - Chest discomfort [Recovering/Resolving]
  - Blood pressure decreased [Recovering/Resolving]
  - Swelling [Recovering/Resolving]

NARRATIVE: CASE EVENT DATE: 20240717
